FAERS Safety Report 23419687 (Version 1)
Quarter: 2024Q1

REPORT INFORMATION
  Report Type: Report from Study
  Country: PA (occurrence: PA)
  Receive Date: 20240119
  Receipt Date: 20240119
  Transmission Date: 20240409
  Serious: Yes (Other)
  Sender: FDA-Public Use
  Company Number: PA-JNJFOC-20240138100

PATIENT
  Sex: Female
  Weight: 64 kg

DRUGS (2)
  1. BORTEZOMIB [Suspect]
     Active Substance: BORTEZOMIB
     Indication: Plasma cell myeloma refractory
     Dosage: UNK
     Route: 065
  2. DARZALEX [Suspect]
     Active Substance: DARATUMUMAB
     Indication: Plasma cell myeloma refractory
     Dosage: 16 MILLIGRAM/KILOGRAM, MONTHLY
     Route: 042
     Dates: start: 20221201

REACTIONS (2)
  - Plasma cell myeloma [Unknown]
  - Treatment noncompliance [Unknown]
